FAERS Safety Report 6472180-8 (Version None)
Quarter: 2009Q4

REPORT INFORMATION
  Report Type: 
  Country: None (occurrence: None)
  Receive Date: 20091203
  Receipt Date: 20091202
  Transmission Date: 20100525
  Serious: Yes (Other)
  Sender: FDA-Public Use
  Company Number: BE-WYE-G03586109

PATIENT
  Sex: Female

DRUGS (2)
  1. RAPAMUNE [Suspect]
  2. PROGRAF [Interacting]
     Dosage: NOT PROVIDED

REACTIONS (2)
  - DRUG INTERACTION [None]
  - DRUG LEVEL DECREASED [None]
